FAERS Safety Report 22894913 (Version 2)
Quarter: 2024Q2

REPORT INFORMATION
  Report Type: Spontaneous
  Country: BE (occurrence: BE)
  Receive Date: 20230901
  Receipt Date: 20240506
  Transmission Date: 20240716
  Serious: Yes (Other)
  Sender: FDA-Public Use
  Company Number: BE-SA-SAC20230703000705

PATIENT
  Sex: Male

DRUGS (2)
  1. DUPIXENT [Suspect]
     Active Substance: DUPILUMAB
     Indication: Dermatitis atopic
     Dosage: 600 MG, 1X
     Dates: start: 20230428, end: 20230428
  2. DUPIXENT [Suspect]
     Active Substance: DUPILUMAB
     Dosage: 300 MG, QOW
     Dates: start: 202305

REACTIONS (8)
  - Corneal thinning [Unknown]
  - Astigmatism [Unknown]
  - Visual impairment [Unknown]
  - Ulcerative keratitis [Recovered/Resolved]
  - Immune-mediated adverse reaction [Unknown]
  - Condition aggravated [Unknown]
  - Eye irritation [Unknown]
  - Keratitis [Unknown]

NARRATIVE: CASE EVENT DATE: 20230101
